FAERS Safety Report 25347713 (Version 1)
Quarter: 2025Q2

REPORT INFORMATION
  Report Type: Spontaneous
  Country: US (occurrence: None)
  Receive Date: 20250522
  Receipt Date: 20250522
  Transmission Date: 20250716
  Serious: Yes (Other)
  Sender: FDA-CTU
  Company Number: None

PATIENT
  Age: 44 Year
  Sex: Female
  Weight: 81 kg

DRUGS (1)
  1. EQUATE COOL AND HEAT PAIN RELIEVING LIQUID [Suspect]
     Active Substance: MENTHOL
     Indication: Myalgia
     Dosage: FREQUENCY : AT BEDTIME;?
     Route: 061
     Dates: start: 20250522, end: 20250522

REACTIONS (3)
  - Pain [None]
  - Erythema [None]
  - Sensitive skin [None]

NARRATIVE: CASE EVENT DATE: 20250522
